FAERS Safety Report 19941223 (Version 1)
Quarter: 2021Q4

REPORT INFORMATION
  Report Type: Spontaneous
  Country: US (occurrence: US)
  Receive Date: 20211012
  Receipt Date: 20211012
  Transmission Date: 20220303
  Serious: No
  Sender: FDA-Public Use
  Company Number: 2021A767408

PATIENT
  Sex: Female

DRUGS (2)
  1. ESOMEPRAZOLE MAGNESIUM [Suspect]
     Active Substance: ESOMEPRAZOLE MAGNESIUM
     Route: 048
  2. NEXIUM [Concomitant]
     Active Substance: ESOMEPRAZOLE MAGNESIUM
     Indication: Gastrooesophageal reflux disease

REACTIONS (8)
  - Hypoaesthesia oral [Unknown]
  - Dyspepsia [Unknown]
  - Tongue discolouration [Unknown]
  - Pain [Unknown]
  - Oropharyngeal pain [Unknown]
  - Blood cholesterol increased [Unknown]
  - Off label use [Unknown]
  - General physical condition abnormal [Unknown]
